FAERS Safety Report 16553246 (Version 1)
Quarter: 2019Q3

REPORT INFORMATION
  Report Type: Spontaneous
  Country: US (occurrence: US)
  Receive Date: 20190710
  Receipt Date: 20190710
  Transmission Date: 20191004
  Serious: Yes (Death, Other)
  Sender: FDA-Public Use
  Company Number: US-AMGEN-USASP2019108690

PATIENT

DRUGS (5)
  1. ETOPOSIDE. [Concomitant]
     Active Substance: ETOPOSIDE
     Dosage: 2.4 GRAM PER SQUARE METRE, (CONTINUOUS INFUSION OVER 30 H STARTING ON DAY 8)
  2. FILGRASTIM [Suspect]
     Active Substance: FILGRASTIM
     Indication: AUTOLOGOUS HAEMATOPOIETIC STEM CELL TRANSPLANT
     Dosage: 10 MICROGRAM/KILOGRAM, QD
     Route: 065
  3. BUSULFAN. [Concomitant]
     Active Substance: BUSULFAN
     Dosage: UNK, (0.8  MG/KG PHARMACOKINETICALLY DOSED TO A TARGET LEVEL OF 750 NG/ML STEADY STATE LEVEL) EVERY
  4. CARMUSTINE. [Concomitant]
     Active Substance: CARMUSTINE
     Dosage: UNK, (600 MG/M2 ON DAY 3)
  5. CYCLOPHOSPHAMIDE. [Concomitant]
     Active Substance: CYCLOPHOSPHAMIDE
     Dosage: UNK, QD (1800 MG/M2 DAILY FOR FOUR DOSES STARTING ON DAY 7)

REACTIONS (7)
  - Myelodysplastic syndrome [Fatal]
  - Acute myeloid leukaemia [Fatal]
  - Unevaluable event [Fatal]
  - Non-Hodgkin^s lymphoma [Fatal]
  - Non-Hodgkin^s lymphoma recurrent [Fatal]
  - Lung neoplasm malignant [Fatal]
  - Infection [Fatal]
